FAERS Safety Report 5253590-3 (Version None)
Quarter: 2007Q1

REPORT INFORMATION
  Report Type: 
  Country: None (occurrence: None)
  Receive Date: 20061201
  Receipt Date: 20060727
  Transmission Date: 20070707
  Serious: No
  Sender: FDA-Public Use
  Company Number: 2006PV018395

PATIENT
  Age: 67 Year
  Sex: Female
  Weight: 77.1115 kg

DRUGS (8)
  1. BYETTA [Suspect]
     Indication: DIABETES MELLITUS NON-INSULIN-DEPENDENT
     Dosage: SEE IMAGE
     Route: 058
     Dates: start: 20050601, end: 20050701
  2. BYETTA [Suspect]
     Indication: DIABETES MELLITUS NON-INSULIN-DEPENDENT
     Dosage: SEE IMAGE
     Route: 058
     Dates: start: 20050701
  3. LASIX [Suspect]
     Dosage: SEE IMAGE
     Route: 048
     Dates: start: 20060501
  4. METFORMIN HCL [Concomitant]
  5. ACTOS [Concomitant]
  6. AMARYL [Concomitant]
  7. ZESTRIL [Concomitant]
  8. CRESTOR [Concomitant]

REACTIONS (8)
  - BLOOD GLUCOSE INCREASED [None]
  - BLOOD PRESSURE SYSTOLIC INCREASED [None]
  - DRUG INEFFECTIVE FOR UNAPPROVED INDICATION [None]
  - FLUID RETENTION [None]
  - HUNGER [None]
  - HYPOAESTHESIA [None]
  - MEMORY IMPAIRMENT [None]
  - PROCEDURAL PAIN [None]
